FAERS Safety Report 7945241-1 (Version None)
Quarter: 2011Q4

REPORT INFORMATION
  Report Type: 
  Country: None (occurrence: None)
  Receive Date: 20111129
  Receipt Date: 20110722
  Transmission Date: 20120403
  Serious: No
  Sender: FDA-Public Use
  Company Number: US-GLAXOSMITHKLINE-A0938023A

PATIENT
  Age: 73 Year
  Sex: Female

DRUGS (6)
  1. SYNTHROID [Concomitant]
  2. SINGULAIR [Concomitant]
  3. LOPRESSOR [Concomitant]
  4. FLOVENT [Suspect]
     Indication: CHRONIC OBSTRUCTIVE PULMONARY DISEASE
     Dosage: 2PUFF TWICE PER DAY
     Route: 055
     Dates: start: 20110101
  5. COMBIVENT [Concomitant]
  6. PROTONIX [Concomitant]

REACTIONS (2)
  - COUGH [None]
  - CHOKING SENSATION [None]
